FAERS Safety Report 6395167-2 (Version None)
Quarter: 2009Q4

REPORT INFORMATION
  Report Type: 
  Country: None (occurrence: None)
  Receive Date: 20091009
  Receipt Date: 20090928
  Transmission Date: 20100525
  Serious: Yes (Hospitalization)
  Sender: FDA-Public Use
  Company Number: PHHY2009NL41466

PATIENT
  Sex: Female

DRUGS (4)
  1. TASIGNA [Suspect]
     Indication: CHRONIC MYELOID LEUKAEMIA
     Dosage: 200 MG, BID
     Route: 065
     Dates: start: 20090701, end: 20090911
  2. LASIX [Concomitant]
     Dosage: 40 MG, QD
     Route: 065
     Dates: start: 20080101
  3. METOPROLOL TARTRATE [Concomitant]
     Dosage: 50 MG
     Route: 065
     Dates: start: 20050101
  4. SIMVASTATIN [Concomitant]
     Dosage: 20 MG, QD
     Route: 065
     Dates: start: 20050101

REACTIONS (4)
  - MALAISE [None]
  - RASH [None]
  - RENAL FAILURE ACUTE [None]
  - TUBULOINTERSTITIAL NEPHRITIS [None]
